FAERS Safety Report 20427987 (Version 1)
Quarter: 2022Q1

REPORT INFORMATION
  Report Type: Spontaneous
  Country: US (occurrence: None)
  Receive Date: 20220204
  Receipt Date: 20220204
  Transmission Date: 20220424
  Serious: Yes (Hospitalization, Other)
  Sender: FDA-Public Use
  Company Number: US-Hikma Pharmaceuticals USA Inc.-US-H14001-22-00358

PATIENT
  Sex: Female

DRUGS (1)
  1. TESTOSTERONE CYPIONATE [Suspect]
     Active Substance: TESTOSTERONE CYPIONATE
     Indication: Hormone therapy
     Route: 058

REACTIONS (6)
  - Hypersensitivity [Unknown]
  - Swelling [Unknown]
  - Injection site erythema [Unknown]
  - Choking [Unknown]
  - Asphyxia [Unknown]
  - Off label use [Unknown]
